FAERS Safety Report 18671018 (Version 1)
Quarter: 2020Q4

REPORT INFORMATION
  Report Type: Spontaneous
  Country: KR (occurrence: KR)
  Receive Date: 20201228
  Receipt Date: 20201228
  Transmission Date: 20210114
  Serious: Yes (Other)
  Sender: FDA-Public Use
  Company Number: KR-TAKEDA-2020TUS059812

PATIENT
  Age: 12 Year
  Sex: Male
  Weight: 50 kg

DRUGS (6)
  1. ADYNOVATE [Suspect]
     Active Substance: ANTIHEMOPHILIC FACTOR, HUMAN RECOMBINANT
     Indication: PROPHYLAXIS
     Dosage: 30 INTERNATIONAL UNIT/KILOGRAM, 4/WEEK
     Route: 065
  2. ADYNOVATE [Suspect]
     Active Substance: ANTIHEMOPHILIC FACTOR, HUMAN RECOMBINANT
     Indication: COAGULATION FACTOR VIII LEVEL
     Dosage: 30 INTERNATIONAL UNIT/KILOGRAM, EVERY 3 DAYS
     Route: 065
  3. ADYNOVATE [Suspect]
     Active Substance: ANTIHEMOPHILIC FACTOR, HUMAN RECOMBINANT
     Indication: COAGULATION FACTOR VIII LEVEL
     Dosage: 30 INTERNATIONAL UNIT/KILOGRAM, EVERY 3 DAYS
     Route: 065
  4. ADYNOVATE [Suspect]
     Active Substance: ANTIHEMOPHILIC FACTOR, HUMAN RECOMBINANT
     Indication: COAGULATION FACTOR VIII LEVEL
     Dosage: 30 INTERNATIONAL UNIT/KILOGRAM, EVERY 3 DAYS
     Route: 065
  5. ADYNOVATE [Suspect]
     Active Substance: ANTIHEMOPHILIC FACTOR, HUMAN RECOMBINANT
     Indication: PROPHYLAXIS
     Dosage: 30 INTERNATIONAL UNIT/KILOGRAM, 4/WEEK
     Route: 065
  6. ADYNOVATE [Suspect]
     Active Substance: ANTIHEMOPHILIC FACTOR, HUMAN RECOMBINANT
     Indication: PROPHYLAXIS
     Dosage: 30 INTERNATIONAL UNIT/KILOGRAM, 4/WEEK
     Route: 065

REACTIONS (1)
  - Traumatic haemorrhage [Unknown]
